FAERS Safety Report 6786658-0 (Version None)
Quarter: 2010Q2

REPORT INFORMATION
  Report Type: 
  Country: None (occurrence: None)
  Receive Date: 20100623
  Receipt Date: 20100609
  Transmission Date: 20101027
  Serious: Yes (Hospitalization, Other)
  Sender: FDA-Public Use
  Company Number: NL-ELI_LILLY_AND_COMPANY-NL201005004158

PATIENT
  Sex: Male

DRUGS (5)
  1. ZYPREXA [Suspect]
     Indication: MANIA
     Dosage: 15 MG, UNK
     Route: 048
     Dates: start: 20100419, end: 20100419
  2. ZYPREXA [Suspect]
     Dosage: 20 MG, UNK
     Route: 048
     Dates: start: 20100420, end: 20100422
  3. FLURAZEPAM [Concomitant]
     Indication: PSYCHOTIC DISORDER
     Dosage: 30 MG, DAILY (1/D)
     Route: 048
     Dates: start: 20040419
  4. PRIADEL [Concomitant]
     Indication: BIPOLAR DISORDER
     Dosage: 1200 MG, DAILY (1/D)
     Route: 048
  5. LORAZEPAM [Concomitant]
     Indication: PSYCHOTIC DISORDER
     Dosage: 2.5 MG, 3/D
     Route: 048
     Dates: start: 20100420

REACTIONS (2)
  - NEUROLEPTIC MALIGNANT SYNDROME [None]
  - RENAL IMPAIRMENT [None]
